FAERS Safety Report 4512416-3 (Version None)
Quarter: 2004Q4

REPORT INFORMATION
  Report Type: 
  Country: None (occurrence: None)
  Receive Date: 20041123
  Receipt Date: 20041108
  Transmission Date: 20050328
  Serious: Yes (Hospitalization)
  Sender: FDA-Public Use
  Company Number: A0533002A

PATIENT
  Age: 52 Year
  Sex: Female

DRUGS (5)
  1. NICODERM CQ [Suspect]
     Indication: EX-SMOKER
     Dosage: 21 MG/ TRANSDERMAL
     Route: 062
     Dates: start: 20040101, end: 20040101
  2. SEMISODIUM VALPROATE [Concomitant]
  3. CLONAZEPAM [Concomitant]
  4. TRAZODONE HCL [Concomitant]
  5. ZOLPIDEM TARTRATE [Concomitant]

REACTIONS (8)
  - ALOPECIA [None]
  - ASTHENIA [None]
  - CARDIAC DISORDER [None]
  - LOSS OF CONSCIOUSNESS [None]
  - OEDEMA PERIPHERAL [None]
  - PNEUMONIA [None]
  - SLEEP APNOEA SYNDROME [None]
  - WEIGHT INCREASED [None]
